FAERS Safety Report 10518721 (Version 1)
Quarter: 2014Q4

REPORT INFORMATION
  Report Type: Spontaneous
  Country: US (occurrence: None)
  Receive Date: 20141014
  Receipt Date: 20141014
  Transmission Date: 20150528
  Serious: No
  Sender: FDA-Public Use
  Company Number: None

PATIENT
  Age: 44 Year
  Sex: Female
  Weight: 75.75 kg

DRUGS (3)
  1. OMEGA 3-6-9 /01333901/ [Concomitant]
     Active Substance: OMEGA-3 FATTY ACIDS
  2. BELVIQ [Suspect]
     Active Substance: LORCASERIN HYDROCHLORIDE
     Indication: WEIGHT DECREASED
     Dosage: 10 MG, BID, BID, ORAL
     Route: 048
     Dates: start: 20140813, end: 20141013
  3. BUPROPION [Concomitant]
     Active Substance: BUPROPION

REACTIONS (1)
  - Micturition urgency [None]

NARRATIVE: CASE EVENT DATE: 20141013
